FAERS Safety Report 16581577 (Version 1)
Quarter: 2019Q3

REPORT INFORMATION
  Report Type: Spontaneous
  Country: US (occurrence: US)
  Receive Date: 20190716
  Receipt Date: 20190716
  Transmission Date: 20191004
  Serious: No
  Sender: FDA-Public Use
  Company Number: US-CHILTERN-US-2019-000579

PATIENT
  Age: 75 Year
  Sex: Male

DRUGS (10)
  1. PRED FORTE [Concomitant]
     Active Substance: PREDNISOLONE ACETATE
     Indication: PROPHYLAXIS
     Dosage: 1 GTT, BID
     Route: 047
     Dates: start: 20190316
  2. RHOPRESSA [Suspect]
     Active Substance: NETARSUDIL MESYLATE
     Indication: GLAUCOMA
     Dosage: 2 GTT, QD
     Route: 047
     Dates: start: 201808, end: 20190313
  3. NITRIC OXIDE. [Concomitant]
     Active Substance: NITRIC OXIDE
     Indication: VASODILATATION
     Dosage: 1 TABLET, BID
     Route: 048
     Dates: start: 20190517
  4. RHOPRESSA [Suspect]
     Active Substance: NETARSUDIL MESYLATE
     Dosage: 2 GTT, QD
     Route: 047
     Dates: start: 20190315
  5. ARTIFICIAL TEARS                   /00222401/ [Concomitant]
     Active Substance: PROPYLENE GLYCOL
     Indication: DRY EYE
     Dosage: 2 GTT, PER HOUR
     Dates: start: 20190201
  6. MURO 128 [Concomitant]
     Active Substance: SODIUM CHLORIDE
     Indication: CORNEAL DISORDER
     Dosage: UNK
     Route: 047
     Dates: start: 20190316
  7. LOVASTATIN. [Concomitant]
     Active Substance: LOVASTATIN
     Indication: ARTERIOSCLEROSIS CORONARY ARTERY
     Dosage: 40 MG, UNK
     Route: 048
     Dates: start: 20190517
  8. XIIDRA [Concomitant]
     Active Substance: LIFITEGRAST
     Indication: DRY EYE
     Dosage: 2 GTT, BID
     Dates: start: 20190522
  9. DORZOLAMIDE TIMOLOL [Concomitant]
     Active Substance: DORZOLAMIDE
     Indication: GLAUCOMA
     Dosage: 2 GTT, BID
     Route: 047
     Dates: start: 2017
  10. ALPHAGAN P [Concomitant]
     Active Substance: BRIMONIDINE TARTRATE
     Indication: GLAUCOMA
     Dosage: 2 GTT, BID
     Route: 047
     Dates: start: 2017

REACTIONS (1)
  - Vision blurred [Not Recovered/Not Resolved]

NARRATIVE: CASE EVENT DATE: 201808
